FAERS Safety Report 7049186-3 (Version None)
Quarter: 2010Q4

REPORT INFORMATION
  Report Type: 
  Country: None (occurrence: None)
  Receive Date: 20101018
  Receipt Date: 20101004
  Transmission Date: 20110411
  Serious: Yes (Hospitalization)
  Sender: FDA-Public Use
  Company Number: GB-RANBAXY-2010R1-38777

PATIENT

DRUGS (2)
  1. RAMIPRIL [Suspect]
     Indication: HYPERTENSION
     Dosage: 10 MG, UNK
     Route: 048
     Dates: start: 20080701, end: 20100901
  2. AMPICILLIN SODIUM/SULBACTAM SODIUM [Suspect]
     Indication: POST PROCEDURAL INFECTION
     Route: 048
     Dates: start: 20100826, end: 20100901

REACTIONS (1)
  - ANAPHYLACTIC REACTION [None]
